FAERS Safety Report 24022525 (Version 2)
Quarter: 2024Q3

REPORT INFORMATION
  Report Type: Report from Study
  Country: CN (occurrence: CN)
  Receive Date: 20240627
  Receipt Date: 20240710
  Transmission Date: 20241017
  Serious: No
  Sender: ROCHE
  Company Number: CN-ROCHE-3349735

PATIENT
  Age: 44 Year
  Sex: Male
  Weight: 62.5 kg

DRUGS (7)
  1. ALECTINIB [Suspect]
     Active Substance: ALECTINIB
     Indication: Non-small cell lung cancer metastatic
     Route: 048
     Dates: start: 20230109
  2. ALLOPURINOL [Concomitant]
     Active Substance: ALLOPURINOL
     Route: 048
     Dates: start: 20220322
  3. HERBALS [Concomitant]
     Active Substance: HERBALS
     Route: 048
     Dates: start: 2017
  4. LOSARTAN POTASSIUM [Concomitant]
     Active Substance: LOSARTAN POTASSIUM
     Route: 048
     Dates: start: 20210705
  5. CALCIUM CARBONATE\CHOLECALCIFEROL [Concomitant]
     Active Substance: CALCIUM CARBONATE\CHOLECALCIFEROL
     Route: 048
     Dates: start: 20230206, end: 20230212
  6. FEBUXOSTAT [Concomitant]
     Active Substance: FEBUXOSTAT
     Route: 048
     Dates: start: 20230210
  7. ALECTINIB [Concomitant]
     Active Substance: ALECTINIB
     Indication: Lung cancer metastatic
     Dates: start: 20230108

REACTIONS (4)
  - Chronic hepatitis B [Not Recovered/Not Resolved]
  - Toothache [Recovered/Resolved]
  - Anaemia [Not Recovered/Not Resolved]
  - Electrolyte imbalance [Recovered/Resolved]

NARRATIVE: CASE EVENT DATE: 20230203
